FAERS Safety Report 10428404 (Version 3)
Quarter: 2014Q4

REPORT INFORMATION
  Report Type: Report from Study
  Country: TW (occurrence: TW)
  Receive Date: 20140903
  Receipt Date: 20141106
  Transmission Date: 20150528
  Serious: Yes (Hospitalization)
  Sender: FDA-Public Use
  Company Number: TW-ABBVIE-14K-153-1277014-00

PATIENT
  Age: 68 Year
  Sex: Male

DRUGS (7)
  1. HUMIRA [Suspect]
     Active Substance: ADALIMUMAB
     Indication: PSORIASIS
     Dosage: Q2W OR Q4W
     Route: 058
     Dates: start: 20121112, end: 20140815
  2. ALPRAZOLAM. [Concomitant]
     Active Substance: ALPRAZOLAM
     Indication: PRODUCT USED FOR UNKNOWN INDICATION
     Route: 048
     Dates: start: 20140829, end: 20140903
  3. WAKAMOTO [Concomitant]
     Indication: PRODUCT USED FOR UNKNOWN INDICATION
     Dosage: BEFORE MEAL
     Route: 048
     Dates: start: 20140829, end: 20140829
  4. WAKAMOTO [Concomitant]
     Dosage: BEFORE MEAL
     Route: 048
     Dates: start: 20140829, end: 20140902
  5. WAKAMOTO [Concomitant]
     Dosage: BEFORE MEAL
     Route: 048
     Dates: start: 20140902, end: 20140903
  6. METHOTREXATE [Concomitant]
     Active Substance: METHOTREXATE
     Indication: PRODUCT USED FOR UNKNOWN INDICATION
     Dates: start: 20131014
  7. AMLODIPINE W/ATORVASTATIN [Concomitant]
     Active Substance: AMLODIPINE\ATORVASTATIN
     Indication: PRODUCT USED FOR UNKNOWN INDICATION
     Route: 048
     Dates: start: 20140831, end: 20140903

REACTIONS (7)
  - Pyrexia [Unknown]
  - Herpes zoster [Recovered/Resolved]
  - Hepatitis B surface antibody positive [Unknown]
  - Feeling cold [Unknown]
  - Swelling face [Unknown]
  - Cellulitis [Unknown]
  - Haematuria [Unknown]

NARRATIVE: CASE EVENT DATE: 201408
